FAERS Safety Report 25208045 (Version 2)
Quarter: 2025Q2

REPORT INFORMATION
  Report Type: Report from Study
  Country: US (occurrence: US)
  Receive Date: 20250417
  Receipt Date: 20250502
  Transmission Date: 20250716
  Serious: Yes (Other)
  Sender: ACADIA PHARMACEUTICALS
  Company Number: US-ACADIA PHARMACEUTICALS INC.-ACA-2025-PIM-004385

PATIENT
  Sex: Male

DRUGS (21)
  1. NUPLAZID [Suspect]
     Active Substance: PIMAVANSERIN TARTRATE
     Indication: Parkinson^s disease psychosis
     Dosage: 34 MILLIGRAM, QD (AT BEDTIME)
     Route: 048
     Dates: start: 20250228, end: 202503
  2. ACETAMINOPHEN\TRAMADOL HYDROCHLORIDE [Concomitant]
     Active Substance: ACETAMINOPHEN\TRAMADOL HYDROCHLORIDE
  3. CLONIDINE [Concomitant]
     Active Substance: CLONIDINE
  4. FERROUS GLUCONATE [Concomitant]
     Active Substance: FERROUS GLUCONATE
  5. VITAMIN B12 [Concomitant]
     Active Substance: CYANOCOBALAMIN
  6. FOLIC ACID [Concomitant]
     Active Substance: FOLIC ACID
  7. LOSARTAN [Concomitant]
     Active Substance: LOSARTAN
  8. PRIMIDONE [Concomitant]
     Active Substance: PRIMIDONE
  9. HUMULIN R [Concomitant]
     Active Substance: INSULIN HUMAN
  10. DAILY VITE [ASCORBIC ACID;COLECALCIFEROL;CYANOCOBALAMIN;FOLIC ACID;NIC [Concomitant]
  11. PREGABALIN [Concomitant]
     Active Substance: PREGABALIN
  12. METOPROLOL [Concomitant]
     Active Substance: METOPROLOL
  13. CARBIDOPA\LEVODOPA [Concomitant]
     Active Substance: CARBIDOPA\LEVODOPA
  14. TAMSULOSIN [Concomitant]
     Active Substance: TAMSULOSIN
  15. NORVASC [Concomitant]
     Active Substance: AMLODIPINE BESYLATE
  16. OMEPRAZOLE [Concomitant]
     Active Substance: OMEPRAZOLE
  17. LOPID [Concomitant]
     Active Substance: GEMFIBROZIL
  18. CYCLOBENZAPRINE [Concomitant]
     Active Substance: CYCLOBENZAPRINE
  19. ZYRTEC [Concomitant]
     Active Substance: CETIRIZINE HYDROCHLORIDE
  20. RENVELA [Concomitant]
     Active Substance: SEVELAMER CARBONATE
  21. ASPIRIN [Concomitant]
     Active Substance: ASPIRIN

REACTIONS (1)
  - Hallucination [Not Recovered/Not Resolved]
